FAERS Safety Report 5604177-1 (Version None)
Quarter: 2008Q1

REPORT INFORMATION
  Report Type: 
  Country: None (occurrence: None)
  Receive Date: 20080123
  Receipt Date: 20080114
  Transmission Date: 20080703
  Serious: Yes (Death)
  Sender: FDA-Public Use
  Company Number: B0503147A

PATIENT
  Age: 50 Year
  Sex: Female

DRUGS (4)
  1. LAMOTRIGINE [Suspect]
     Dosage: ORAL
     Route: 048
  2. TRICYCLIC ANTIDEPRESSANT (FORMULATION UNKNOWN) (TRICYCLIC ANTIDEPRESSA [Suspect]
     Dosage: ORAL
     Route: 048
  3. CLOZAPINE [Suspect]
     Dosage: ORAL
     Route: 048
  4. DULOXETINE (FORMULATION UNKNOWN) (DULOXETINE) [Suspect]
     Dosage: ORAL
     Route: 048

REACTIONS (1)
  - COMPLETED SUICIDE [None]
